FAERS Safety Report 12439840 (Version 2)
Quarter: 2016Q2

REPORT INFORMATION
  Report Type: Report from Study
  Country: PR (occurrence: PR)
  Receive Date: 20160606
  Receipt Date: 20160627
  Transmission Date: 20160815
  Serious: Yes (Other)
  Sender: FDA-Public Use
  Company Number: PR-ABBVIE-16K-131-1642478-00

PATIENT
  Sex: Female
  Weight: 69.01 kg

DRUGS (1)
  1. HUMIRA [Suspect]
     Active Substance: ADALIMUMAB
     Indication: RHEUMATOID ARTHRITIS
     Route: 058
     Dates: start: 20110302, end: 201605

REACTIONS (7)
  - Tendon rupture [Recovering/Resolving]
  - Ligament injury [Recovering/Resolving]
  - Carpal tunnel syndrome [Recovered/Resolved]
  - Musculoskeletal pain [Recovered/Resolved]
  - Intervertebral disc protrusion [Recovered/Resolved]
  - Malaise [Unknown]
  - Procedural pain [Not Recovered/Not Resolved]

NARRATIVE: CASE EVENT DATE: 2011
